FAERS Safety Report 5825933-0 (Version None)
Quarter: 2008Q3

REPORT INFORMATION
  Report Type: 
  Country: None (occurrence: None)
  Receive Date: 20080729
  Receipt Date: 20080722
  Transmission Date: 20090109
  Serious: Yes (Other)
  Sender: FDA-Public Use
  Company Number: PHEH2008US06528

PATIENT
  Sex: Female

DRUGS (1)
  1. COMBIPATCH [Suspect]
     Dosage: 0.05 - 0.14 MG/24 HOURS
     Route: 062

REACTIONS (3)
  - BREAST PAIN [None]
  - HAEMORRHAGE [None]
  - WITHDRAWAL SYNDROME [None]
